FAERS Safety Report 6117856-7 (Version None)
Quarter: 2009Q1

REPORT INFORMATION
  Report Type: 
  Country: None (occurrence: None)
  Receive Date: 20090314
  Receipt Date: 20090202
  Transmission Date: 20090719
  Serious: No
  Sender: FDA-Public Use
  Company Number: US-ABBOTT-09P-163-0501054-00

PATIENT
  Sex: Female
  Weight: 68.1 kg

DRUGS (8)
  1. HUMIRA [Suspect]
     Indication: CROHN'S DISEASE
     Route: 058
     Dates: start: 20081201
  2. HUMIRA [Suspect]
  3. ASACOL [Concomitant]
     Indication: CROHN'S DISEASE
     Route: 048
  4. ESTRADIOL [Concomitant]
     Indication: HORMONE REPLACEMENT THERAPY
     Route: 048
     Dates: start: 19910101
  5. BENICAR [Concomitant]
     Indication: HYPERTENSION
     Route: 048
  6. VERELAN [Concomitant]
     Indication: BLOOD PRESSURE
     Route: 048
  7. PRILOSEC OTC [Concomitant]
     Indication: GASTROOESOPHAGEAL REFLUX DISEASE
     Route: 048
  8. CALCIUM +D [Concomitant]
     Indication: VITAMIN SUPPLEMENTATION
     Route: 048

REACTIONS (5)
  - ARTHRALGIA [None]
  - BACK PAIN [None]
  - HAEMOGLOBIN DECREASED [None]
  - NECK PAIN [None]
  - VITAMIN D DECREASED [None]
